FAERS Safety Report 4556607-4 (Version None)
Quarter: 2005Q1

REPORT INFORMATION
  Report Type: 
  Country: None (occurrence: None)
  Receive Date: 20050118
  Receipt Date: 20050110
  Transmission Date: 20050727
  Serious: Yes (Other)
  Sender: FDA-Public Use
  Company Number: HQWYE517111JAN05

PATIENT

DRUGS (2)
  1. CORDARONE [Suspect]
     Dosage: ORAL
     Route: 048
  2. ANTIBIOTICS (ANTIBIOTICS) [Suspect]

REACTIONS (2)
  - DRUG INTERACTION [None]
  - NODAL RHYTHM [None]
